FAERS Safety Report 6120664-4 (Version None)
Quarter: 2009Q1

REPORT INFORMATION
  Report Type: 
  Country: None (occurrence: None)
  Receive Date: 20090312
  Receipt Date: 20090312
  Transmission Date: 20090719
  Serious: Yes (Other)
  Sender: FDA-Public Use
  Company Number: None

PATIENT
  Age: 8 Year
  Sex: Male
  Weight: 29.0302 kg

DRUGS (2)
  1. SINGULAIR [Suspect]
     Indication: ASTHMA
     Dosage: 4 M DAILY PO
     Route: 048
     Dates: start: 20081001, end: 20090305
  2. SINGULAIR [Suspect]
     Indication: RHINITIS ALLERGIC
     Dosage: 4 M DAILY PO
     Route: 048
     Dates: start: 20081001, end: 20090305

REACTIONS (3)
  - ABNORMAL BEHAVIOUR [None]
  - DEPRESSION [None]
  - SUICIDAL IDEATION [None]
